FAERS Safety Report 14532189 (Version 2)
Quarter: 2018Q1

REPORT INFORMATION
  Report Type: Spontaneous
  Country: US (occurrence: US)
  Receive Date: 20180214
  Receipt Date: 20180327
  Transmission Date: 20180509
  Serious: Yes (Hospitalization)
  Sender: FDA-Public Use
  Company Number: US-ACTELION-A-US2018-167361

PATIENT
  Age: 7 Year
  Sex: Female

DRUGS (8)
  1. FLOVENT HFA [Concomitant]
     Active Substance: FLUTICASONE PROPIONATE
  2. TRACLEER [Suspect]
     Active Substance: BOSENTAN
     Indication: PULMONARY ARTERIAL HYPERTENSION
     Dosage: 31.25 MG, QD
     Route: 048
     Dates: start: 20140701
  3. ALBUTEROL. [Concomitant]
     Active Substance: ALBUTEROL
  4. TRACLEER [Suspect]
     Active Substance: BOSENTAN
     Dosage: 32 MG, QD
     Route: 048
  5. FLUTICASONE. [Concomitant]
     Active Substance: FLUTICASONE
  6. SILDENAFIL. [Concomitant]
     Active Substance: SILDENAFIL
  7. BACTRIM DS [Concomitant]
     Active Substance: SULFAMETHOXAZOLE\TRIMETHOPRIM
  8. TYLENOL [Concomitant]
     Active Substance: ACETAMINOPHEN

REACTIONS (2)
  - Pain in extremity [Unknown]
  - Pain [Unknown]

NARRATIVE: CASE EVENT DATE: 20180203
